FAERS Safety Report 9600737 (Version 1)
Quarter: 2013Q4

REPORT INFORMATION
  Report Type: Spontaneous
  Country: US (occurrence: US)
  Receive Date: 20131004
  Receipt Date: 20131004
  Transmission Date: 20140711
  Serious: No
  Sender: FDA-Public Use
  Company Number: US-AMGEN-USASP2013037279

PATIENT
  Age: 54 Year
  Sex: Female
  Weight: 73.92 kg

DRUGS (6)
  1. ENBREL [Suspect]
     Indication: RHEUMATOID ARTHRITIS
     Dosage: UNK
  2. MULTIVITAMIN                       /00097801/ [Concomitant]
     Dosage: UNK
  3. AMOXICILLIN [Concomitant]
     Dosage: UNK
  4. BIOTIN [Concomitant]
     Dosage: UNK
  5. OMEPRAZOLE [Concomitant]
     Dosage: UNK
  6. VIT D [Concomitant]
     Dosage: UNK

REACTIONS (3)
  - Pain in extremity [Unknown]
  - Injection site reaction [Unknown]
  - Injection site induration [Unknown]
